FAERS Safety Report 7141214-X (Version None)
Quarter: 2010Q4

REPORT INFORMATION
  Report Type: 
  Country: None (occurrence: None)
  Receive Date: 20101122
  Receipt Date: 20100812
  Transmission Date: 20110411
  Serious: Yes (Death, Other)
  Sender: FDA-Public Use
  Company Number: PPC201000053

PATIENT
  Age: 67 Year
  Sex: Male

DRUGS (5)
  1. AMIODARONE HCL [Suspect]
     Indication: VENTRICULAR TACHYCARDIA
     Dosage: 200 MG, DAILY;
  2. DIGOXIN [Concomitant]
  3. FUROSEMIDE [Concomitant]
  4. CANDESARTAN CILEXETIL [Concomitant]
  5. CERVEDILOL [Concomitant]

REACTIONS (5)
  - CARDIAC FAILURE CONGESTIVE [None]
  - GENERAL PHYSICAL HEALTH DETERIORATION [None]
  - GLOMERULONEPHRITIS [None]
  - PULMONARY MASS [None]
  - VENTRICULAR TACHYCARDIA [None]
